FAERS Safety Report 5194419-1 (Version None)
Quarter: 2006Q4

REPORT INFORMATION
  Report Type: 
  Country: None (occurrence: None)
  Receive Date: 20061228
  Receipt Date: 20060717
  Transmission Date: 20070319
  Serious: Yes (Other)
  Sender: FDA-Public Use
  Company Number: SE-PFIZER INC-2006091193

PATIENT
  Sex: Male

DRUGS (4)
  1. PREDNISOLONE [Suspect]
     Indication: INCLUSION BODY MYOSITIS
     Dosage: DAILY DOSE:70MG
     Route: 048
  2. IMUREL [Suspect]
  3. CHEMOTHERAPY NOS [Concomitant]
  4. SANDIMMUNE [Concomitant]
     Dates: start: 20050901, end: 20051201

REACTIONS (4)
  - BREAST CANCER [None]
  - DEPRESSION [None]
  - MYOSITIS [None]
  - SUICIDAL IDEATION [None]
